FAERS Safety Report 11766795 (Version 2)
Quarter: 2016Q1

REPORT INFORMATION
  Report Type: Spontaneous
  Country: US (occurrence: US)
  Receive Date: 20151123
  Receipt Date: 20160216
  Transmission Date: 20160525
  Serious: Yes (Other)
  Sender: FDA-Public Use
  Company Number: US-BAYER-2015-469156

PATIENT
  Age: 25 Year
  Sex: Female
  Weight: 46.26 kg

DRUGS (2)
  1. MIRENA [Suspect]
     Active Substance: LEVONORGESTREL
     Indication: CONTRACEPTION
     Dosage: 20 MCG/24HR, CONT
     Route: 015
     Dates: start: 20140312, end: 20150821
  2. LOVENOX [Concomitant]
     Active Substance: ENOXAPARIN SODIUM
     Dosage: 40 MG, BID
     Route: 058

REACTIONS (7)
  - Amenorrhoea [None]
  - Chlamydial infection [None]
  - Vaginal discharge [None]
  - Neisseria test positive [None]
  - Bacterial vaginosis [None]
  - Pelvic pain [None]
  - Candida test positive [None]

NARRATIVE: CASE EVENT DATE: 201508
